FAERS Safety Report 7996489-1 (Version None)
Quarter: 2011Q4

REPORT INFORMATION
  Report Type: 
  Country: None (occurrence: None)
  Receive Date: 20111220
  Receipt Date: 20111212
  Transmission Date: 20120403
  Serious: Yes (Other)
  Sender: FDA-Public Use
  Company Number: US-ASTRAZENECA-2011SE68720

PATIENT
  Age: 48 Year
  Sex: Male
  Weight: 99.8 kg

DRUGS (11)
  1. SEROQUEL XR [Suspect]
     Route: 048
     Dates: start: 20100803
  2. SEROQUEL XR [Suspect]
     Indication: ANXIETY
     Route: 048
     Dates: start: 20090101
  3. SEROQUEL XR [Suspect]
     Indication: AFFECTIVE DISORDER
     Route: 048
     Dates: start: 20090101
  4. SEROQUEL XR [Suspect]
     Indication: SLEEP DISORDER
     Route: 048
     Dates: start: 20090101
  5. GEODON [Concomitant]
  6. PAXIL [Concomitant]
     Indication: DEPRESSION
  7. CLONIDINE [Concomitant]
     Indication: INSOMNIA
  8. SEROQUEL XR [Suspect]
     Route: 048
     Dates: start: 20100803
  9. SEROQUEL XR [Suspect]
     Route: 048
     Dates: start: 20100803
  10. PAXIL [Concomitant]
  11. CLONIDINE [Concomitant]

REACTIONS (6)
  - INSOMNIA [None]
  - FLASHBACK [None]
  - DRUG DOSE OMISSION [None]
  - OFF LABEL USE [None]
  - DEPRESSED MOOD [None]
  - WITHDRAWAL SYNDROME [None]
